FAERS Safety Report 21232341 (Version 2)
Quarter: 2022Q3

REPORT INFORMATION
  Report Type: Other
  Country: US (occurrence: None)
  Receive Date: 20220819
  Receipt Date: 20220928
  Transmission Date: 20221027
  Serious: Yes (Death, Other)
  Sender: FDA-Public Use
  Company Number: US-ROCHE-3159540

PATIENT
  Age: 79 Year
  Sex: Female

DRUGS (1)
  1. OCREVUS [Suspect]
     Active Substance: OCRELIZUMAB
     Indication: Secondary progressive multiple sclerosis
     Dosage: ON 18/NOV/2021 LAST INFUSION
     Route: 065
     Dates: start: 20170510

REACTIONS (4)
  - Infection [Unknown]
  - Pneumonia [Unknown]
  - Blood immunoglobulin G decreased [Unknown]
  - Death [Fatal]

NARRATIVE: CASE EVENT DATE: 20220526
